FAERS Safety Report 7887940-6 (Version None)
Quarter: 2011Q4

REPORT INFORMATION
  Report Type: 
  Country: None (occurrence: None)
  Receive Date: 20111103
  Receipt Date: 20111025
  Transmission Date: 20120403
  Serious: Yes (Hospitalization)
  Sender: FDA-Public Use
  Company Number: AT-ABBOTT-11P-009-0869325-00

PATIENT
  Age: 60 Year
  Sex: Female

DRUGS (15)
  1. RISPERDAL [Suspect]
     Indication: PRODUCT USED FOR UNKNOWN INDICATION
     Dates: start: 20110814, end: 20110819
  2. RISPERDAL [Suspect]
     Dates: start: 20110912, end: 20110916
  3. RISPERDAL [Suspect]
     Dates: start: 20110917
  4. IXEL [Suspect]
     Indication: PRODUCT USED FOR UNKNOWN INDICATION
     Dosage: 25 - 50 MG/DAY
     Dates: start: 20110908, end: 20110913
  5. LAMICTAL [Suspect]
     Dates: start: 20110830, end: 20110913
  6. CIRCADIN [Suspect]
     Indication: PRODUCT USED FOR UNKNOWN INDICATION
     Dosage: 2 - 4 MG/DAY
     Dates: start: 20110801, end: 20110912
  7. AKINETON [Suspect]
     Indication: PRODUCT USED FOR UNKNOWN INDICATION
     Dates: start: 20110908, end: 20110913
  8. MIRTAZAPINE [Suspect]
     Indication: PRODUCT USED FOR UNKNOWN INDICATION
     Dates: start: 20110701, end: 20110912
  9. DOMINAL [Suspect]
     Indication: PRODUCT USED FOR UNKNOWN INDICATION
     Dosage: 80 - 160 MG/DAY
     Dates: start: 20110818
  10. LAMICTAL [Suspect]
     Indication: PRODUCT USED FOR UNKNOWN INDICATION
     Dates: start: 20090101, end: 20110816
  11. LITHIUM CARBONATE [Suspect]
     Indication: PRODUCT USED FOR UNKNOWN INDICATION
     Dates: start: 20090101, end: 20090912
  12. LORAZEPAM [Suspect]
     Indication: PRODUCT USED FOR UNKNOWN INDICATION
     Dosage: 1 - 4 MG/DAY
     Dates: start: 20110813, end: 20110924
  13. LAMICTAL [Suspect]
     Dates: start: 20110817, end: 20110829
  14. LITHIUM CARBONATE [Suspect]
     Dates: start: 20110913
  15. LAMICTAL [Suspect]
     Dates: start: 20110914

REACTIONS (5)
  - DELIRIUM [None]
  - ATAXIA [None]
  - OEDEMA PERIPHERAL [None]
  - EYELID OEDEMA [None]
  - SEDATION [None]
